FAERS Safety Report 4955893-6 (Version None)
Quarter: 2006Q1

REPORT INFORMATION
  Report Type: 
  Country: None (occurrence: None)
  Receive Date: 20060327
  Receipt Date: 20060327
  Transmission Date: 20060701
  Serious: Yes (Hospitalization, Other)
  Sender: FDA-Public Use
  Company Number: None

PATIENT
  Sex: Male
  Weight: 73 kg

DRUGS (5)
  1. ELSPAR [Suspect]
     Indication: ACUTE LYMPHOCYTIC LEUKAEMIA
     Dosage: 69000 UNIT
     Dates: start: 20060318
  2. G-CSF (FILGRASTIM, AMEGEN) [Suspect]
     Dosage: 4050 MG
     Dates: start: 20060313
  3. DAUNORUBICIN HCL [Suspect]
     Dosage: 450 MG
     Dates: start: 20060227
  4. CYCLOPHOSPHAMIDE [Suspect]
     Dosage: 2300 MG
     Dates: start: 20060225
  5. ALLOPURINOL [Suspect]
     Dosage: 3000 MG
     Dates: start: 20060303

REACTIONS (8)
  - ASTHENIA [None]
  - CATHETER SITE RELATED REACTION [None]
  - ELECTROLYTE IMBALANCE [None]
  - NECK PAIN [None]
  - ODYNOPHAGIA [None]
  - PHARYNGOLARYNGEAL PAIN [None]
  - STAPHYLOCOCCAL INFECTION [None]
  - THROMBOSIS [None]
